FAERS Safety Report 7476517-2 (Version None)
Quarter: 2011Q2

REPORT INFORMATION
  Report Type: 
  Country: None (occurrence: None)
  Receive Date: 20110512
  Receipt Date: 20110509
  Transmission Date: 20111010
  Serious: Yes (Other)
  Sender: FDA-Public Use
  Company Number: PHHY2009BR15283

PATIENT
  Age: 61 Year
  Sex: Female

DRUGS (3)
  1. ALPRAZOLAM [Concomitant]
     Dosage: HALF A TABLET IN THE MORNING AND 1 TABLET AT NIGHT
  2. EXFORGE [Suspect]
     Indication: HYPERTENSION
     Dosage: 80 MG VALS AND 5 MG AMLO (MORNING)
     Route: 048
     Dates: start: 20090413
  3. CLORANA [Concomitant]
     Indication: DIURETIC THERAPY
     Dosage: HALF A TABLET A DAY

REACTIONS (2)
  - INTERVERTEBRAL DISC PROTRUSION [None]
  - ERYTHEMA [None]
